FAERS Safety Report 10088078 (Version 2)
Quarter: 2014Q2

REPORT INFORMATION
  Report Type: Spontaneous
  Country: JP (occurrence: JP)
  Receive Date: 20140421
  Receipt Date: 20140502
  Transmission Date: 20141212
  Serious: Yes (Hospitalization)
  Sender: FDA-Public Use
  Company Number: JP-ROCHE-1383139

PATIENT
  Age: 75 Year
  Sex: Female
  Weight: 43 kg

DRUGS (9)
  1. BONVIVA [Suspect]
     Indication: OSTEOPOROSIS
     Dosage: DOSAGE IS UNCERTAIN.
     Route: 042
     Dates: start: 20140306, end: 20140306
  2. TRAMCET [Concomitant]
     Indication: BACK PAIN
     Route: 048
     Dates: start: 20140222
  3. DOMPERIDONE [Concomitant]
     Indication: NAUSEA
     Route: 048
     Dates: start: 20140222
  4. ADEFURONIC [Concomitant]
     Indication: BACK PAIN
     Route: 054
     Dates: start: 20140222
  5. DIBUCAINE [Concomitant]
     Indication: BACK PAIN
     Dosage: DRUG: DIBCALSOR
     Route: 030
     Dates: start: 20140222
  6. ELCITONIN [Concomitant]
     Indication: OSTEOPOROSIS
     Route: 030
     Dates: start: 20140224
  7. LOXONIN [Concomitant]
     Indication: BACK PAIN
     Route: 061
     Dates: start: 20140304
  8. NEUROTROPIN (JAPAN) [Concomitant]
     Indication: BACK PAIN
     Route: 042
     Dates: start: 20140224
  9. NYROZIN [Concomitant]
     Indication: BACK PAIN
     Route: 042
     Dates: start: 20140224

REACTIONS (3)
  - Pyrexia [Recovered/Resolved]
  - Arthritis [Recovering/Resolving]
  - Arthritis [Recovering/Resolving]
